FAERS Safety Report 16149646 (Version 2)
Quarter: 2019Q2

REPORT INFORMATION
  Report Type: Spontaneous
  Country: US (occurrence: US)
  Receive Date: 20190402
  Receipt Date: 20190528
  Transmission Date: 20190711
  Serious: No
  Sender: FDA-Public Use
  Company Number: US-009507513-1903USA009459

PATIENT
  Age: 57 Year
  Sex: Male

DRUGS (4)
  1. REBETOL [Suspect]
     Active Substance: RIBAVIRIN
     Indication: HEPATITIS E
     Dosage: 600 MILLIGRAM, QD
     Route: 048
  2. REBETOL [Suspect]
     Active Substance: RIBAVIRIN
     Dosage: 1200 MILLIGRAM, QD
     Route: 048
  3. SOFOSBUVIR [Concomitant]
     Active Substance: SOFOSBUVIR
     Indication: HEPATITIS E
     Dosage: 400 MILLIGRAM, QD
  4. REBETOL [Suspect]
     Active Substance: RIBAVIRIN
     Dosage: 800 MILLIGRAM, QD
     Route: 048

REACTIONS (2)
  - Anaemia [Unknown]
  - Product use in unapproved indication [Unknown]
